FAERS Safety Report 11039128 (Version 1)
Quarter: 2015Q2

REPORT INFORMATION
  Report Type: Report from Study
  Country: AT (occurrence: AT)
  Receive Date: 20150416
  Receipt Date: 20150416
  Transmission Date: 20150821
  Serious: Yes (Hospitalization)
  Sender: FDA-Public Use
  Company Number: PHHO2015AT006145

PATIENT
  Age: 45 Year
  Sex: Male

DRUGS (7)
  1. MYCOPHENOLIC ACID. [Suspect]
     Active Substance: MYCOPHENOLIC ACID
     Indication: RENAL TRANSPLANT
     Dosage: 720 MG, QD
     Route: 048
     Dates: start: 20100726
  2. PROGRAF [Concomitant]
     Active Substance: TACROLIMUS\TACROLIMUS ANHYDROUS
     Indication: RENAL TRANSPLANT
     Route: 065
  3. MYCOPHENOLIC ACID. [Suspect]
     Active Substance: MYCOPHENOLIC ACID
     Dosage: 1440 MG, QD
     Route: 048
     Dates: start: 20100827
  4. MYCOPHENOLIC ACID. [Suspect]
     Active Substance: MYCOPHENOLIC ACID
     Dosage: 360 MG, QD
     Route: 048
     Dates: start: 20101007
  5. APREDNISLON [Concomitant]
     Active Substance: PREDNISOLONE
     Indication: RENAL TRANSPLANT
     Route: 065
  6. MYCOPHENOLIC ACID. [Suspect]
     Active Substance: MYCOPHENOLIC ACID
     Dosage: 540 MG, QD
     Route: 048
     Dates: start: 20101028
  7. MYCOPHENOLIC ACID. [Suspect]
     Active Substance: MYCOPHENOLIC ACID
     Dosage: 360 MG, QD
     Route: 048
     Dates: start: 20101214

REACTIONS (7)
  - Acute kidney injury [Recovered/Resolved]
  - Renal transplant failure [Recovered/Resolved]
  - Wound infection [Recovered/Resolved]
  - Leukopenia [Recovered/Resolved]
  - Bacteraemia [Recovered/Resolved]
  - Kidney transplant rejection [Recovered/Resolved]
  - Pyrexia [Recovered/Resolved]

NARRATIVE: CASE EVENT DATE: 20100810
